FAERS Safety Report 5324393-6 (Version None)
Quarter: 2007Q2

REPORT INFORMATION
  Report Type: 
  Country: None (occurrence: None)
  Receive Date: 20070509
  Receipt Date: 20070424
  Transmission Date: 20071010
  Serious: Yes (Other)
  Sender: FDA-Public Use
  Company Number: 2007RR-07242

PATIENT
  Sex: Male

DRUGS (4)
  1. LISINOPRIL [Suspect]
     Indication: HYPERTENSION
     Dosage: ORAL
     Route: 048
  2. ACTRAPID [Concomitant]
  3. INSULIN (INSULIN) [Concomitant]
  4. SIMVASTATIN [Concomitant]

REACTIONS (2)
  - MOOD ALTERED [None]
  - PARANOIA [None]
